FAERS Safety Report 18344422 (Version 1)
Quarter: 2020Q4

REPORT INFORMATION
  Report Type: Spontaneous
  Country: US (occurrence: US)
  Receive Date: 20201005
  Receipt Date: 20201005
  Transmission Date: 20210114
  Serious: Yes (Other)
  Sender: FDA-Public Use
  Company Number: None

PATIENT
  Age: 72 Year
  Sex: Female
  Weight: 86.85 kg

DRUGS (12)
  1. XARELTO [Concomitant]
     Active Substance: RIVAROXABAN
  2. PRAVASTATIN. [Concomitant]
     Active Substance: PRAVASTATIN
  3. ATIVAN [Concomitant]
     Active Substance: LORAZEPAM
  4. TUKYSA [Concomitant]
     Active Substance: TUCATINIB
  5. PROCHLORPERAZINE. [Concomitant]
     Active Substance: PROCHLORPERAZINE
  6. METOPROLOL. [Concomitant]
     Active Substance: METOPROLOL
  7. DOCUASATE SODIUM [Concomitant]
  8. DOXYCYCLINE. [Concomitant]
     Active Substance: DOXYCYCLINE
  9. ZOFRAN [Concomitant]
     Active Substance: ONDANSETRON HYDROCHLORIDE
  10. CAPECITABINE. [Suspect]
     Active Substance: CAPECITABINE
     Indication: BREAST CANCER
     Route: 048
     Dates: start: 20200618
  11. VITAMIN D3 [Concomitant]
     Active Substance: CHOLECALCIFEROL
  12. VITAMIN C [Concomitant]
     Active Substance: ASCORBIC ACID

REACTIONS (2)
  - Palmar-plantar erythrodysaesthesia syndrome [None]
  - Localised infection [None]

NARRATIVE: CASE EVENT DATE: 20201005
